FAERS Safety Report 7386114-5 (Version None)
Quarter: 2011Q2

REPORT INFORMATION
  Report Type: 
  Country: None (occurrence: None)
  Receive Date: 20110315
  Receipt Date: 20110309
  Transmission Date: 20111010
  Serious: Yes (Hospitalization)
  Sender: FDA-Public Use
  Company Number: 2011027833

PATIENT
  Age: 76 Year
  Sex: Male
  Weight: 92.9874 kg

DRUGS (20)
  1. AUGMENTIN '125' [Concomitant]
  2. HUMALOG [Concomitant]
  3. PREDNISONE [Concomitant]
  4. VICODIN [Concomitant]
  5. PROAIR (HFA (SALBUTAMOL) [Concomitant]
  6. ISOSORBIDE DINITRATE [Concomitant]
  7. DOCUSATE [Concomitant]
  8. LIPITOR [Concomitant]
  9. NYSTATIN [Concomitant]
  10. TOVIAZ [Suspect]
  11. DILTIAZEM [Concomitant]
  12. FLORINEF [Concomitant]
  13. ZETIA [Concomitant]
  14. ZEMAIRA [Suspect]
     Indication: ALPHA-1 ANTI-TRYPSIN DEFICIENCY
     Dosage: 60 MG/KG 1X/WEEK, INFUSED 0.08ML/KG/MIN (7.5ML/MIN); INTRAVENOUS (NOT OTHERWISE SPECIFIED),
     Route: 042
     Dates: start: 20110218
  15. ZEMAIRA [Suspect]
     Indication: ALPHA-1 ANTI-TRYPSIN DEFICIENCY
     Dosage: 60 MG/KG 1X/WEEK, INFUSED 0.08ML/KG/MIN (7.5ML/MIN); INTRAVENOUS (NOT OTHERWISE SPECIFIED),
     Route: 042
     Dates: start: 20080301
  16. METFORMIN HCL [Concomitant]
  17. ADVAIR HFA [Concomitant]
  18. SPIRIVA [Concomitant]
  19. SYNTHROID [Concomitant]
  20. TESTIM [Concomitant]

REACTIONS (4)
  - URINARY TRACT INFECTION [None]
  - UPPER RESPIRATORY TRACT INFECTION [None]
  - PULMONARY CONGESTION [None]
  - HYPOTENSION [None]
